FAERS Safety Report 4852236-3 (Version None)
Quarter: 2005Q4

REPORT INFORMATION
  Report Type: 
  Country: None (occurrence: None)
  Receive Date: 20051123
  Receipt Date: 20050610
  Transmission Date: 20060501
  Serious: Yes (Hospitalization, Other)
  Sender: FDA-Public Use
  Company Number: US-JNJFOC-20050505827

PATIENT
  Age: 71 Year
  Sex: Male
  Weight: 79.3795 kg

DRUGS (3)
  1. LEVAQUIN [Suspect]
     Indication: CHRONIC OBSTRUCTIVE PULMONARY DISEASE
     Dosage: 500 MG, INTRAVENOUS
     Route: 042
     Dates: start: 20050125, end: 20050210
  2. SOLUMEDRAL (METHYLPREDNISOLONE SODIUM SUCCINATE) [Concomitant]
  3. PREDNISONE [Concomitant]

REACTIONS (1)
  - TENDON RUPTURE [None]
